FAERS Safety Report 5399976-8 (Version None)
Quarter: 2007Q3

REPORT INFORMATION
  Report Type: 
  Country: None (occurrence: None)
  Receive Date: 20070725
  Receipt Date: 20070712
  Transmission Date: 20080115
  Serious: Yes (Hospitalization)
  Sender: FDA-Public Use
  Company Number: S07-GER-02127-01

PATIENT
  Age: 68 Year
  Sex: Male

DRUGS (5)
  1. CITALOPRAM HYDROBROMIDE [Suspect]
     Indication: DEPRESSION
     Dosage: 20 MG QD PO
     Route: 048
     Dates: end: 20070101
  2. CITALOPRAM HYDROBROMIDE [Suspect]
     Indication: DISEASE RECURRENCE
     Dosage: 20 MG QD PO
     Route: 048
     Dates: end: 20070101
  3. FENISTIL (DIMETINDENE MALEATE) [Concomitant]
  4. CITALOPRAM HYDROBROMIDE [Suspect]
     Indication: DEPRESSION
     Dosage: 40 MG QD PO
     Route: 048
     Dates: start: 20070312
  5. CITALOPRAM HYDROBROMIDE [Suspect]
     Indication: DISEASE RECURRENCE
     Dosage: 40 MG QD PO
     Route: 048
     Dates: start: 20070312

REACTIONS (7)
  - BLOOD CREATININE INCREASED [None]
  - DEHYDRATION [None]
  - ESCHERICHIA URINARY TRACT INFECTION [None]
  - HYPERKALAEMIA [None]
  - HYPOGLYCAEMIA [None]
  - HYPOTHERMIA [None]
  - INSULINOMA [None]
